FAERS Safety Report 9105420 (Version 2)
Quarter: 2013Q1

REPORT INFORMATION
  Report Type: Spontaneous
  Country: US (occurrence: US)
  Receive Date: 20130220
  Receipt Date: 20130308
  Transmission Date: 20140127
  Serious: Yes (Other)
  Sender: FDA-Public Use
  Company Number: US-TEVA-386385USA

PATIENT
  Sex: Female

DRUGS (1)
  1. DONEPEZIL [Suspect]

REACTIONS (4)
  - Suicidal ideation [Unknown]
  - Dry mouth [Unknown]
  - Pain [Unknown]
  - Drug intolerance [Unknown]
